FAERS Safety Report 5175401-7 (Version None)
Quarter: 2006Q4

REPORT INFORMATION
  Report Type: 
  Country: None (occurrence: None)
  Receive Date: 20061212
  Receipt Date: 20061212
  Transmission Date: 20070319
  Serious: Yes (Hospitalization)
  Sender: FDA-Public Use
  Company Number: None

PATIENT
  Sex: Female
  Weight: 60.3284 kg

DRUGS (2)
  1. CETUXIMAB 2MG/ML BRISTOL-MYERS SQUIBB [Suspect]
     Indication: BREAST CANCER
     Dosage: 648 MG 3 DOSE (LOADING) IV
     Route: 042
     Dates: start: 20060913
  2. CETUXIMAB 2MG/ML BRISTOL-MYERS SQUIBB [Suspect]
     Indication: BREAST CANCER
     Dosage: 405 MG WEEKLY DOSE IV
     Route: 042
     Dates: start: 20060920, end: 20061011

REACTIONS (7)
  - ASTHENIA [None]
  - BLOOD MAGNESIUM ABNORMAL [None]
  - FATIGUE [None]
  - GAIT DISTURBANCE [None]
  - NAUSEA [None]
  - PERFORMANCE STATUS DECREASED [None]
  - VOMITING [None]
